FAERS Safety Report 10286108 (Version 2)
Quarter: 2014Q3

REPORT INFORMATION
  Report Type: Report from Study
  Country: CA (occurrence: CA)
  Receive Date: 20140709
  Receipt Date: 20140709
  Transmission Date: 20150326
  Serious: Yes (Hospitalization)
  Sender: FDA-Public Use
  Company Number: CA-JNJFOC-20140309636

PATIENT
  Age: 21 Year
  Sex: Female
  Weight: 57.3 kg

DRUGS (7)
  1. REMICADE [Suspect]
     Active Substance: INFLIXIMAB
     Indication: CROHN^S DISEASE
     Route: 042
     Dates: start: 20120809
  2. IMURAN [Suspect]
     Active Substance: AZATHIOPRINE
     Indication: PRODUCT USED FOR UNKNOWN INDICATION
     Route: 065
  3. REMICADE [Suspect]
     Active Substance: INFLIXIMAB
     Indication: CROHN^S DISEASE
     Route: 042
     Dates: start: 20120921
  4. CALCIUM [Concomitant]
     Active Substance: CALCIUM
     Route: 065
  5. MULTIVITAMIN [Concomitant]
     Active Substance: VITAMINS
     Route: 065
  6. VITAMIN (PRENATAL) [Concomitant]
     Route: 065
  7. VITAMIN D [Concomitant]
     Active Substance: CHOLECALCIFEROL
     Route: 065

REACTIONS (2)
  - Premature labour [Recovered/Resolved]
  - Exposure during pregnancy [Recovered/Resolved]

NARRATIVE: CASE EVENT DATE: 201310
